FAERS Safety Report 18768636 (Version 1)
Quarter: 2021Q1

REPORT INFORMATION
  Report Type: Spontaneous
  Country: US (occurrence: US)
  Receive Date: 20210121
  Receipt Date: 20210121
  Transmission Date: 20210419
  Serious: Yes (Hospitalization)
  Sender: FDA-Public Use
  Company Number: None

PATIENT
  Age: 20 Year
  Sex: Female

DRUGS (1)
  1. CORICIDIN HBP COUGH AND COLD [Suspect]
     Active Substance: CHLORPHENIRAMINE MALEATE\DEXTROMETHORPHAN HYDROBROMIDE
     Route: 048

REACTIONS (6)
  - Mental status changes [None]
  - Confusional state [None]
  - Intentional overdose [None]
  - Agitation [None]
  - Tachycardia [None]
  - Toxicity to various agents [None]

NARRATIVE: CASE EVENT DATE: 20210119
